FAERS Safety Report 17015635 (Version 6)
Quarter: 2020Q1

REPORT INFORMATION
  Report Type: Spontaneous
  Country: US (occurrence: US)
  Receive Date: 20191111
  Receipt Date: 20200327
  Transmission Date: 20200409
  Serious: Yes (Hospitalization)
  Sender: FDA-Public Use
  Company Number: US-PFIZER INC-2019482116

PATIENT
  Age: 64 Year
  Sex: Female
  Weight: 80.73 kg

DRUGS (3)
  1. FASLODEX [Concomitant]
     Active Substance: FULVESTRANT
     Dosage: UNK
  2. FEMARA [Concomitant]
     Active Substance: LETROZOLE
     Dosage: UNK
  3. IBRANCE [Suspect]
     Active Substance: PALBOCICLIB
     Indication: BREAST CANCER STAGE IV
     Dosage: 125 MG, CYCLIC (125 MG QD (ONCE DAILY) FOR 21 DAYS OFF NO MEDS 1 WEEK)
     Dates: start: 201902

REACTIONS (5)
  - Pancreatic disorder [Recovered/Resolved]
  - Gallbladder disorder [Unknown]
  - Liver disorder [Unknown]
  - Cholelithiasis [Recovered/Resolved]
  - Tumour marker increased [Unknown]

NARRATIVE: CASE EVENT DATE: 201910
